FAERS Safety Report 5535189-4 (Version None)
Quarter: 2007Q4

REPORT INFORMATION
  Report Type: 
  Country: None (occurrence: None)
  Receive Date: 20071206
  Receipt Date: 20071128
  Transmission Date: 20080405
  Serious: Yes (Other)
  Sender: FDA-Public Use
  Company Number: PHBS2007JP16385

PATIENT
  Age: 44 Year
  Sex: Female

DRUGS (9)
  1. ZOMETA [Suspect]
     Indication: METASTASES TO BONE
     Dosage: 4 MG, UNK
     Route: 042
     Dates: start: 20060714, end: 20070914
  2. AREDIA [Suspect]
     Indication: METASTASES TO BONE
     Route: 065
  3. HYSRON [Concomitant]
     Indication: BREAST CANCER
     Dosage: 600 MG, UNK
     Route: 048
     Dates: start: 20061212
  4. MUCOSTA [Concomitant]
     Route: 048
  5. BIOFERMIN [Concomitant]
  6. TAKEPRON [Concomitant]
     Indication: REFLUX OESOPHAGITIS
     Dosage: 15 MG, UNK
     Route: 048
     Dates: start: 20061212
  7. LASIX [Concomitant]
     Indication: MALIGNANT ASCITES
     Dosage: 40 MG, UNK
     Dates: start: 20070223
  8. XELODA [Concomitant]
     Indication: MALIGNANT ASCITES
     Dosage: 1800 MG, UNK
     Route: 048
     Dates: start: 20070831
  9. OXYCONTIN [Concomitant]
     Indication: CANCER PAIN
     Dosage: 240 MG, UNK
     Route: 048
     Dates: start: 20060526

REACTIONS (8)
  - BONE DISORDER [None]
  - BONE PAIN [None]
  - DENTAL ALVEOLAR ANOMALY [None]
  - LOOSE TOOTH [None]
  - MALIGNANT ASCITES [None]
  - ORAL DISCOMFORT [None]
  - REFLUX OESOPHAGITIS [None]
  - TOOTHACHE [None]
